FAERS Safety Report 12939756 (Version 1)
Quarter: 2016Q4

REPORT INFORMATION
  Report Type: Report from Study
  Country: MX (occurrence: MX)
  Receive Date: 20161115
  Receipt Date: 20161115
  Transmission Date: 20170207
  Serious: Yes (Hospitalization)
  Sender: FDA-Public Use
  Company Number: MX-ROCHE-1854677

PATIENT
  Age: 73 Year
  Sex: Female
  Weight: 43.5 kg

DRUGS (5)
  1. FUROSEMIDE. [Concomitant]
     Active Substance: FUROSEMIDE
     Dosage: CURRENTLY ONGOING
     Route: 048
  2. PROPANOLOL [Concomitant]
     Active Substance: PROPRANOLOL HYDROCHLORIDE
     Indication: HYPERTENSION
     Dosage: HALF TABLET, AT NIGHT, CURRENTLY ONGOING
     Route: 048
     Dates: start: 2015
  3. RIBAVIRIN. [Suspect]
     Active Substance: RIBAVIRIN
     Indication: HEPATITIS C
     Dosage: DAILY, STOPPED
     Route: 048
     Dates: start: 20160401, end: 201606
  4. SPIRONOLACTONE. [Concomitant]
     Active Substance: SPIRONOLACTONE
     Dosage: CURRENTLY ONGOING
     Route: 048
  5. PEGASYS [Suspect]
     Active Substance: PEGINTERFERON ALFA-2A
     Indication: HEPATITIS C
     Dosage: STOPPED
     Route: 058
     Dates: start: 20160401, end: 201606

REACTIONS (3)
  - Anaemia [Recovered/Resolved]
  - Thyroid disorder [Recovered/Resolved]
  - Optic nerve infarction [Recovered/Resolved with Sequelae]

NARRATIVE: CASE EVENT DATE: 20160427
